FAERS Safety Report 9173240 (Version 1)
Quarter: 2013Q1

REPORT INFORMATION
  Report Type: Spontaneous
  Country: GB (occurrence: None)
  Receive Date: 20130314
  Receipt Date: 20130314
  Transmission Date: 20140127
  Serious: Yes (Hospitalization)
  Sender: FDA-Public Use
  Company Number: IND1-GB-2013-0018

PATIENT
  Age: 60 Year
  Sex: Male

DRUGS (2)
  1. INDOMETHACIN [Suspect]
     Indication: GOUT
     Dosage: 150 MG (50 MG,3 IN 1 D)
     Dates: start: 20110301, end: 20130202
  2. AMLODIPINE (AMLODIPINE) (AMLODIPINE) [Concomitant]

REACTIONS (4)
  - Duodenal ulcer [None]
  - Gastrointestinal haemorrhage [None]
  - Melaena [None]
  - Self-medication [None]
